FAERS Safety Report 8409580-2 (Version None)
Quarter: 2012Q2

REPORT INFORMATION
  Report Type: 
  Country: None (occurrence: None)
  Receive Date: 20120529
  Receipt Date: 20120515
  Transmission Date: 20120825
  Serious: Yes (Hospitalization)
  Sender: FDA-Public Use
  Company Number: 2012ST000465

PATIENT
  Age: 75 Year
  Sex: Female

DRUGS (2)
  1. MATULANE [Suspect]
     Indication: HODGKIN'S DISEASE
     Dosage: 150 MG; QD; PO
     Route: 048
     Dates: start: 20120305
  2. MATULANE [Suspect]
     Indication: HODGKIN'S DISEASE
     Dosage: 150 MG; QD; PO
     Route: 048
     Dates: start: 20120419

REACTIONS (2)
  - FALL [None]
  - CEREBROVASCULAR ACCIDENT [None]
